FAERS Safety Report 8583678-0 (Version None)
Quarter: 2012Q3

REPORT INFORMATION
  Report Type: 
  Country: None (occurrence: None)
  Receive Date: 20120809
  Receipt Date: 20120709
  Transmission Date: 20120928
  Serious: Yes (Hospitalization)
  Sender: FDA-Public Use
  Company Number: JP-009507513-1208JPN000369

PATIENT

DRUGS (18)
  1. MIROBECT [Concomitant]
     Indication: ARRHYTHMIA
     Route: 048
  2. ANTEBATE [Concomitant]
     Indication: DERMATITIS
     Dosage: AS-NEEDED
     Route: 061
  3. PEG-INTRON [Suspect]
     Indication: HEPATITIS C
     Dosage: 1.5MCG/KG/WEEK
     Route: 058
     Dates: start: 20120427
  4. UBIRON [Concomitant]
     Indication: HEPATITIS C
     Route: 048
  5. ISOLEUCINE (+) LEUCINE (+) VALINE [Concomitant]
     Indication: HEPATITIS C
     Route: 048
  6. MUCOSTA [Concomitant]
     Indication: PROPHYLAXIS
     Dosage: 100MG/DAY AS-NEEDED
     Route: 048
     Dates: start: 20120427
  7. REBETOL [Suspect]
     Indication: HEPATITIS C
     Route: 048
     Dates: start: 20120427, end: 20120524
  8. BERIZYM (LYSOZYME CHLORIDE) [Concomitant]
     Indication: GASTRITIS
     Route: 048
  9. REBETOL [Suspect]
     Route: 048
     Dates: start: 20120525
  10. ONEALFA [Concomitant]
     Indication: OSTEOPOROSIS
     Dosage: 1 MICROGRAM, ONCE
     Route: 048
  11. ASPARA CA [Concomitant]
     Indication: OSTEOPOROSIS
     Route: 048
  12. DEXALTIN [Concomitant]
     Indication: STOMATITIS
     Dosage: AS-NEEDED
     Route: 061
  13. LOXONIN [Concomitant]
     Indication: PROPHYLAXIS
     Dosage: 60MG/DAY AS-NEEDED
     Route: 048
     Dates: start: 20120427
  14. LANSOPRAZOLE [Concomitant]
     Indication: GASTRITIS
     Route: 048
  15. AMLODIPINE [Concomitant]
     Indication: HYPERTENSION
     Route: 048
  16. TELAVIC [Suspect]
     Indication: HEPATITIS C
     Route: 048
     Dates: start: 20120427, end: 20120517
  17. DIOVAN [Concomitant]
     Indication: HYPERTENSION
     Dosage: 160MG/DAY AS-NEEDED
     Route: 048
  18. LIDOMEX [Concomitant]
     Indication: DERMATITIS
     Dosage: AS-NEEDED
     Route: 061

REACTIONS (3)
  - ANAEMIA [None]
  - PANCREATITIS [None]
  - RENAL IMPAIRMENT [None]
